FAERS Safety Report 19068246 (Version 1)
Quarter: 2021Q1

REPORT INFORMATION
  Report Type: Spontaneous
  Country: US (occurrence: US)
  Receive Date: 20210329
  Receipt Date: 20210329
  Transmission Date: 20210420
  Serious: No
  Sender: FDA-Public Use
  Company Number: US-RECORDATI-2021000560

PATIENT

DRUGS (3)
  1. MITOTANE [Concomitant]
     Active Substance: MITOTANE
     Indication: PITUITARY-DEPENDENT CUSHING^S SYNDROME
     Dosage: UNK
     Dates: start: 202011
  2. ISTURISA [Suspect]
     Active Substance: OSILODROSTAT PHOSPHATE
     Indication: ADRENAL GLAND CANCER
     Dosage: UNK
     Route: 048
     Dates: start: 202009
  3. ISTURISA [Suspect]
     Active Substance: OSILODROSTAT PHOSPHATE
     Indication: CUSHING^S SYNDROME
     Dosage: 4 MILLIGRAM, BID
     Route: 048
     Dates: start: 202012

REACTIONS (1)
  - Alopecia [Recovered/Resolved]

NARRATIVE: CASE EVENT DATE: 202009
